FAERS Safety Report 13319233 (Version 1)
Quarter: 2017Q1

REPORT INFORMATION
  Report Type: Spontaneous
  Country: None (occurrence: US)
  Receive Date: 20170309
  Receipt Date: 20170309
  Transmission Date: 20170428
  Serious: Yes (Other)
  Sender: FDA-Public Use
  Company Number: None

PATIENT
  Age: 62 Year
  Sex: Female

DRUGS (1)
  1. IBRANCE [Suspect]
     Active Substance: PALBOCICLIB
     Indication: BREAST CANCER
     Dosage: 100 MG DAILY FOR 21 DAYS, 7 DAYS OFF ORALLY
     Route: 048
     Dates: start: 20170203

REACTIONS (1)
  - Thrombosis [None]

NARRATIVE: CASE EVENT DATE: 20160307
